FAERS Safety Report 8870473 (Version 6)
Quarter: 2014Q4

REPORT INFORMATION
  Report Type: Spontaneous
  Country: GR (occurrence: GR)
  Receive Date: 20121029
  Receipt Date: 20141024
  Transmission Date: 20150529
  Serious: Yes (Hospitalization, Other)
  Sender: FDA-Public Use
  Company Number: GR-BIOGENIDEC-2012BI008981

PATIENT
  Age: 42 Year
  Sex: Male
  Weight: 82 kg

DRUGS (11)
  1. LIPITOR [Concomitant]
     Active Substance: ATORVASTATIN CALCIUM
     Dates: start: 2010
  2. CELLCEPT [Concomitant]
     Active Substance: MYCOPHENOLATE MOFETIL\MYCOPHENOLATE MOFETIL HYDROCHLORIDE
  3. XANAX [Concomitant]
     Active Substance: ALPRAZOLAM
     Route: 048
  4. TYSABRI [Suspect]
     Active Substance: NATALIZUMAB
     Indication: MULTIPLE SCLEROSIS
     Route: 042
     Dates: start: 200809, end: 20120201
  5. AMANTADINE [Concomitant]
     Active Substance: AMANTADINE
  6. MIOREL [Concomitant]
     Active Substance: ORPHENADRINE
     Route: 048
  7. CORTISONE [Concomitant]
     Active Substance: CORTISONE\HYDROCORTISONE
     Route: 048
  8. KEPPRA [Concomitant]
     Active Substance: LEVETIRACETAM
  9. LYRICA [Concomitant]
     Active Substance: PREGABALIN
  10. MODIODAL [Concomitant]
     Active Substance: MODAFINIL
     Route: 048
  11. LADOSE [Concomitant]
     Active Substance: FLUOXETINE HYDROCHLORIDE
     Route: 048

REACTIONS (5)
  - Drug-induced liver injury [Recovered/Resolved]
  - Progressive multifocal leukoencephalopathy [Not Recovered/Not Resolved]
  - Drug eruption [Recovered/Resolved]
  - Immune reconstitution inflammatory syndrome [Unknown]
  - Epilepsy [Recovered/Resolved]

NARRATIVE: CASE EVENT DATE: 20120210
